FAERS Safety Report 5425653-0 (Version None)
Quarter: 2007Q3

REPORT INFORMATION
  Report Type: 
  Country: None (occurrence: None)
  Receive Date: 20070726
  Receipt Date: 20070516
  Transmission Date: 20080115
  Serious: No
  Sender: FDA-Public Use
  Company Number: POMP-11063

PATIENT
  Age: 12 Year
  Sex: Male
  Weight: 40.8 kg

DRUGS (6)
  1. MYOZYME [Suspect]
     Indication: GLYCOGEN STORAGE DISEASE TYPE II
     Dosage: 20 MG, KG, Q2WKS; IV
     Route: 042
     Dates: start: 20060601
  2. MYOZYME [Suspect]
     Indication: GLYCOGEN STORAGE DISEASE TYPE II
     Dosage: 20 MG, KG, Q2WKS; IV
     Route: 042
     Dates: start: 20041101, end: 20060614
  3. ROBINUL [Concomitant]
  4. ALBUTEROL [Concomitant]
  5. MUCOMYST [Concomitant]
  6. CLARITIN [Concomitant]

REACTIONS (1)
  - INFUSION SITE EXTRAVASATION [None]
